FAERS Safety Report 18957909 (Version 1)
Quarter: 2021Q1

REPORT INFORMATION
  Report Type: Report from Study
  Country: GB (occurrence: JP)
  Receive Date: 20210302
  Receipt Date: 20210302
  Transmission Date: 20210420
  Serious: Yes (Other)
  Sender: FDA-Public Use
  Company Number: JP-ASTELLAS-2021US007249

PATIENT
  Age: 73 Year
  Sex: Female

DRUGS (1)
  1. ERLOTINIB [Suspect]
     Active Substance: ERLOTINIB
     Indication: NON-SMALL CELL LUNG CANCER
     Dosage: UNK UNK, UNKNOWN FREQ.(TOTAL:90950MG LAST ADMINISTRATION 21?NOV?2018)
     Route: 048
     Dates: start: 20160510

REACTIONS (4)
  - Hypertension [Not Recovered/Not Resolved]
  - Dermatitis acneiform [Recovering/Resolving]
  - Lymphoedema [Recovering/Resolving]
  - Skin ulcer [Recovered/Resolved]

NARRATIVE: CASE EVENT DATE: 20160515
